FAERS Safety Report 8396626-3 (Version None)
Quarter: 2012Q2

REPORT INFORMATION
  Report Type: 
  Country: None (occurrence: None)
  Receive Date: 20120530
  Receipt Date: 20120521
  Transmission Date: 20120825
  Serious: No
  Sender: FDA-Public Use
  Company Number: US-PFIZER INC-2012123658

PATIENT
  Age: 74 Year
  Sex: Male
  Weight: 92.517 kg

DRUGS (8)
  1. FISH OIL [Concomitant]
     Dosage: UNK, DAILY
  2. POTASSIUM [Concomitant]
     Dosage: 10 MEQ, DAILY
  3. WARFARIN [Concomitant]
     Dosage: 2 MG, DAILY
  4. METOPROLOL TARTRATE [Concomitant]
     Dosage: 50 MG, 2X/DAY
  5. ASPIRIN [Concomitant]
     Dosage: UNK, DAILY
  6. TORSEMIDE [Concomitant]
     Dosage: 10 MG, DAILY
  7. LIPITOR [Suspect]
     Indication: BLOOD CHOLESTEROL
     Dosage: 20 MG, UNK
     Dates: start: 20120401
  8. VITAMIN D [Concomitant]
     Dosage: UNK, DAILY

REACTIONS (2)
  - NAUSEA [None]
  - MALAISE [None]
